FAERS Safety Report 10208652 (Version 1)
Quarter: 2014Q2

REPORT INFORMATION
  Report Type: Spontaneous
  Country: US (occurrence: None)
  Receive Date: 20140529
  Receipt Date: 20140529
  Transmission Date: 20141212
  Serious: Yes (Hospitalization)
  Sender: FDA-Public Use
  Company Number: None

PATIENT
  Age: 76 Year
  Sex: Female
  Weight: 94.6 kg

DRUGS (2)
  1. LINEZOLID [Suspect]
     Indication: URINARY TRACT INFECTION
     Dosage: 1 TABLET BID ORAL
     Route: 048
     Dates: start: 20140427, end: 20140428
  2. RISPERDAL [Suspect]
     Indication: SCHIZOAFFECTIVE DISORDER
     Dosage: 12.5     EVERY 2 WEEKS INTRAMUSCULAR
     Route: 030
     Dates: start: 20130727, end: 20140528

REACTIONS (5)
  - Serotonin syndrome [None]
  - Tachypnoea [None]
  - Tachycardia [None]
  - Autonomic nervous system imbalance [None]
  - Myoclonus [None]
